FAERS Safety Report 15179508 (Version 1)
Quarter: 2018Q3

REPORT INFORMATION
  Report Type: Spontaneous
  Country: CA (occurrence: CA)
  Receive Date: 20180723
  Receipt Date: 20180723
  Transmission Date: 20181010
  Serious: Yes (Death, Other)
  Sender: FDA-Public Use
  Company Number: CA-AMGEN-CANSP2018099079

PATIENT
  Sex: Male

DRUGS (1)
  1. FILGRASTIM [Suspect]
     Active Substance: FILGRASTIM
     Indication: METASTATIC NEOPLASM
     Dosage: UNK
     Route: 065

REACTIONS (2)
  - Endocrine neoplasm malignant [Fatal]
  - Malignant neoplasm progression [Fatal]
